FAERS Safety Report 15362568 (Version 2)
Quarter: 2018Q3

REPORT INFORMATION
  Report Type: Spontaneous
  Country: GB (occurrence: GB)
  Receive Date: 20180907
  Receipt Date: 20180913
  Transmission Date: 20181010
  Serious: Yes (Death, Hospitalization)
  Sender: FDA-Public Use
  Company Number: GB-ELI_LILLY_AND_COMPANY-GB201809000966

PATIENT
  Age: 65 Year
  Sex: Male
  Weight: 67 kg

DRUGS (2)
  1. PRIADEL                            /00033702/ [Suspect]
     Active Substance: LITHIUM CARBONATE
     Indication: BIPOLAR I DISORDER
     Dosage: 600 MG, UNKNOWN
     Route: 048
  2. OLANZAPINE. [Suspect]
     Active Substance: OLANZAPINE
     Indication: BIPOLAR I DISORDER
     Dosage: UNK UNK, UNKNOWN
     Route: 065

REACTIONS (5)
  - Withdrawal syndrome [Fatal]
  - Pneumonia aspiration [Fatal]
  - Dysphagia [Fatal]
  - Pneumonia [Fatal]
  - Tardive dyskinesia [Fatal]

NARRATIVE: CASE EVENT DATE: 20170815
